FAERS Safety Report 10883475 (Version 1)
Quarter: 2015Q1

REPORT INFORMATION
  Report Type: Spontaneous
  Country: US (occurrence: US)
  Receive Date: 20150303
  Receipt Date: 20150303
  Transmission Date: 20150721
  Serious: Yes (Other)
  Sender: FDA-Public Use
  Company Number: US-SUCAMPO AG-SPI201500135

PATIENT
  Sex: Female

DRUGS (2)
  1. UNKNOWN EYE DROPS [Concomitant]
     Active Substance: UNSPECIFIED INGREDIENT
     Indication: DRY EYE
  2. AMITIZA [Suspect]
     Active Substance: LUBIPROSTONE
     Indication: CONSTIPATION
     Dosage: 24 MCG, PRN
     Route: 048
     Dates: start: 2012

REACTIONS (2)
  - Anaphylactic reaction [Unknown]
  - Rash [Unknown]

NARRATIVE: CASE EVENT DATE: 201502
